FAERS Safety Report 16312250 (Version 3)
Quarter: 2019Q2

REPORT INFORMATION
  Report Type: Report from Study
  Country: AR (occurrence: AR)
  Receive Date: 20190515
  Receipt Date: 20190522
  Transmission Date: 20190711
  Serious: Yes (Hospitalization, Other)
  Sender: FDA-Public Use
  Company Number: AR-AMGEN-ARGSL2019020208

PATIENT
  Age: 67 Year
  Sex: Male

DRUGS (1)
  1. VECTIBIX [Suspect]
     Active Substance: PANITUMUMAB
     Indication: COLORECTAL CANCER METASTATIC
     Dosage: UNK, Q2WK (IN BETWEEN THE 4TH AND 5TH CYCLE, HE RESTS 21 DAYS)
     Route: 065
     Dates: start: 201808, end: 20190212

REACTIONS (11)
  - Herpes virus infection [Not Recovered/Not Resolved]
  - Acne [Recovering/Resolving]
  - Immunosuppression [Not Recovered/Not Resolved]
  - Tracheal obstruction [Unknown]
  - Skin induration [Not Recovered/Not Resolved]
  - Cough [Not Recovered/Not Resolved]
  - Neck pain [Not Recovered/Not Resolved]
  - Rash generalised [Recovering/Resolving]
  - Mouth swelling [Not Recovered/Not Resolved]
  - Underweight [Not Recovered/Not Resolved]
  - Dry skin [Not Recovered/Not Resolved]

NARRATIVE: CASE EVENT DATE: 2019
